FAERS Safety Report 7578411-5 (Version None)
Quarter: 2011Q2

REPORT INFORMATION
  Report Type: 
  Country: None (occurrence: None)
  Receive Date: 20110628
  Receipt Date: 20110620
  Transmission Date: 20111010
  Serious: Yes (Hospitalization, Other)
  Sender: FDA-Public Use
  Company Number: US-ACTELION-A-US2011-50419

PATIENT

DRUGS (1)
  1. TRACLEER [Suspect]
     Indication: PULMONARY ARTERIAL HYPERTENSION
     Dosage: UNK
     Route: 048
     Dates: start: 20110316

REACTIONS (5)
  - ASPIRATION [None]
  - PARAINFLUENZAE VIRUS INFECTION [None]
  - FAILURE TO THRIVE [None]
  - GASTROSTOMY TUBE INSERTION [None]
  - PNEUMONIA [None]
